FAERS Safety Report 8924181 (Version 2)
Quarter: 2012Q4

REPORT INFORMATION
  Report Type: 
  Country: US (occurrence: US)
  Receive Date: 20121126
  Receipt Date: 20121220
  Transmission Date: 20130627
  Serious: Yes (Hospitalization)
  Sender: FDA-Public Use
  Company Number: US-GLAXOSMITHKLINE-A0951443A

PATIENT
  Age: 41 Year
  Sex: Female
  Weight: 96 kg

DRUGS (2)
  1. FLOLAN [Suspect]
     Indication: PULMONARY ARTERIAL HYPERTENSION
     Dosage: 67.5NGKM Unknown
     Route: 065
     Dates: start: 20030321
  2. TRACLEER [Concomitant]
     Dosage: 125MG Twice per day

REACTIONS (5)
  - Gastrointestinal haemorrhage [Unknown]
  - Bronchitis [Recovered/Resolved]
  - Ear infection [Recovered/Resolved]
  - Sinusitis [Recovered/Resolved]
  - Pain in jaw [Unknown]
